FAERS Safety Report 13104105 (Version 1)
Quarter: 2017Q1

REPORT INFORMATION
  Report Type: Spontaneous
  Country: CA (occurrence: CA)
  Receive Date: 20170111
  Receipt Date: 20170111
  Transmission Date: 20170428
  Serious: Yes (Other)
  Sender: FDA-Public Use
  Company Number: CA-ROCHE-1876603

PATIENT
  Sex: Male

DRUGS (1)
  1. XOLAIR [Suspect]
     Active Substance: OMALIZUMAB
     Indication: PRODUCT USED FOR UNKNOWN INDICATION
     Dosage: PATERNAL DOSE: 375 MG, BIW (FETAL DRUG EXPOSURE VIA FATHER)
     Route: 064

REACTIONS (2)
  - Premature baby [Unknown]
  - Exposure via father [Unknown]

NARRATIVE: CASE EVENT DATE: 201612
